FAERS Safety Report 8823409 (Version 2)
Quarter: 2013Q1

REPORT INFORMATION
  Report Type: Spontaneous
  Country: CA (occurrence: CA)
  Receive Date: 20121003
  Receipt Date: 20130325
  Transmission Date: 20140127
  Serious: Yes (Hospitalization)
  Sender: FDA-Public Use
  Company Number: CA-B.I. PHARMACEUTICALS,INC./RIDGEFIELD-2012-CN-01992CN

PATIENT
  Age: 79 Year
  Sex: Female

DRUGS (8)
  1. PRADAX [Suspect]
     Indication: ATRIAL FIBRILLATION
     Dosage: 220 MG
     Dates: start: 201104
  2. LANOXIN [Concomitant]
     Dosage: 0.125 MG
  3. SOTALOL [Concomitant]
     Dosage: 100 MG
  4. ADALAT XR [Concomitant]
  5. PLAVIX [Concomitant]
     Dosage: 220 MG
  6. ASPIRIN [Concomitant]
     Dosage: 80 MG
  7. PANTOLOC [Concomitant]
     Dosage: 40 MG
  8. CRESTOR [Concomitant]
     Dosage: 20 MG

REACTIONS (3)
  - Cerebrovascular accident [Recovered/Resolved]
  - Coronary artery thrombosis [Recovered/Resolved]
  - Dyspnoea [Not Recovered/Not Resolved]
